FAERS Safety Report 18923295 (Version 1)
Quarter: 2021Q1

REPORT INFORMATION
  Report Type: Spontaneous
  Country: ES (occurrence: ES)
  Receive Date: 20210222
  Receipt Date: 20210222
  Transmission Date: 20210420
  Serious: Yes (Other)
  Sender: FDA-Public Use
  Company Number: ES-CELLTRION-2021-ES-000026

PATIENT
  Age: 68 Year
  Sex: Female

DRUGS (1)
  1. LEVOFLOXACIN (NON?SPECIFIC) [Suspect]
     Active Substance: LEVOFLOXACIN
     Indication: PRODUCT USED FOR UNKNOWN INDICATION
     Route: 065

REACTIONS (1)
  - Autoimmune hepatitis [Unknown]
